FAERS Safety Report 6717334-8 (Version None)
Quarter: 2010Q2

REPORT INFORMATION
  Report Type: 
  Country: None (occurrence: None)
  Receive Date: 20100510
  Receipt Date: 20100505
  Transmission Date: 20101027
  Serious: Yes (Life-Threatening, Hospitalization)
  Sender: FDA-Public Use
  Company Number: FR-ASTRAZENECA-2010SE20377

PATIENT
  Age: 62 Year
  Sex: Male

DRUGS (5)
  1. NEXIUM [Suspect]
     Route: 048
  2. CORTANCYL [Suspect]
     Route: 048
  3. PREVISCAN [Suspect]
     Route: 048
  4. DIFFU K [Suspect]
     Route: 048
  5. REVATIO [Suspect]
     Route: 048
     Dates: start: 20071112

REACTIONS (3)
  - CONGESTIVE CARDIOMYOPATHY [None]
  - LEFT VENTRICULAR FAILURE [None]
  - RESTRICTIVE CARDIOMYOPATHY [None]
